FAERS Safety Report 22335371 (Version 1)
Quarter: 2023Q2

REPORT INFORMATION
  Report Type: Spontaneous
  Country: CA (occurrence: CA)
  Receive Date: 20230518
  Receipt Date: 20230518
  Transmission Date: 20230721
  Serious: Yes (Other)
  Sender: FDA-Public Use
  Company Number: CA-TEVA-2023-CA-2887085

PATIENT
  Age: 71 Year
  Sex: Male

DRUGS (8)
  1. BETAMETHASONE [Suspect]
     Active Substance: BETAMETHASONE
     Indication: Trichophytosis
     Route: 061
  2. BETAMETHASONE [Suspect]
     Active Substance: BETAMETHASONE
     Indication: Fungal infection
     Route: 065
  3. CLOBETASOL PROPIONATE [Suspect]
     Active Substance: CLOBETASOL PROPIONATE
     Indication: Trichophytosis
     Route: 061
  4. CLOBETASOL PROPIONATE [Suspect]
     Active Substance: CLOBETASOL PROPIONATE
     Indication: Fungal infection
     Route: 065
  5. FLUCONAZOLE [Concomitant]
     Active Substance: FLUCONAZOLE
     Indication: Trichophytosis
     Dosage: 150 MILLIGRAM DAILY;
     Route: 048
  6. FLUCONAZOLE [Concomitant]
     Active Substance: FLUCONAZOLE
     Indication: Fungal infection
     Route: 065
  7. TERBINAFINE [Concomitant]
     Active Substance: TERBINAFINE
     Indication: Trichophytosis
     Route: 048
  8. TERBINAFINE [Concomitant]
     Active Substance: TERBINAFINE
     Indication: Fungal infection
     Route: 065

REACTIONS (2)
  - Condition aggravated [Unknown]
  - Fungal infection [Unknown]
